FAERS Safety Report 9408596 (Version 1)
Quarter: 2013Q3

REPORT INFORMATION
  Report Type: Spontaneous
  Country: US (occurrence: US)
  Receive Date: 20130718
  Receipt Date: 20130718
  Transmission Date: 20140515
  Serious: Yes (Other)
  Sender: FDA-Public Use
  Company Number: US-ASTELLAS-2013US005257

PATIENT
  Age: 80 Year
  Sex: Male
  Weight: 96 kg

DRUGS (1)
  1. VESICARE [Suspect]
     Indication: HYPERTONIC BLADDER
     Dosage: 5 MG, UID/QD
     Route: 048
     Dates: start: 20130427, end: 20130512

REACTIONS (4)
  - Drug ineffective [Unknown]
  - Dizziness [Unknown]
  - Constipation [Unknown]
  - Dry mouth [Unknown]
